FAERS Safety Report 9685518 (Version 1)
Quarter: 2013Q4

REPORT INFORMATION
  Report Type: Spontaneous
  Country: US (occurrence: US)
  Receive Date: 20131113
  Receipt Date: 20131113
  Transmission Date: 20140711
  Serious: Yes (Hospitalization)
  Sender: FDA-Public Use
  Company Number: US-BRISTOL-MYERS SQUIBB COMPANY-19788074

PATIENT
  Age: 18 Year
  Sex: Male

DRUGS (4)
  1. ONGLYZA TABS [Suspect]
  2. INVOKANA [Suspect]
     Indication: TYPE 2 DIABETES MELLITUS
     Dosage: TABLET,
  3. LANTUS [Suspect]
  4. NOVOLOG [Suspect]

REACTIONS (5)
  - Kidney infection [Not Recovered/Not Resolved]
  - Urinary tract infection [Not Recovered/Not Resolved]
  - Vomiting [Not Recovered/Not Resolved]
  - Dehydration [Not Recovered/Not Resolved]
  - Abdominal pain upper [Not Recovered/Not Resolved]
